FAERS Safety Report 15507288 (Version 1)
Quarter: 2018Q4

REPORT INFORMATION
  Report Type: Spontaneous
  Country: BR (occurrence: BR)
  Receive Date: 20181016
  Receipt Date: 20181016
  Transmission Date: 20190205
  Serious: Yes (Other)
  Sender: FDA-Public Use
  Company Number: BR-PFIZER INC-2018374275

PATIENT
  Age: 69 Year
  Sex: Female

DRUGS (3)
  1. FRONTAL [Concomitant]
     Active Substance: ALPRAZOLAM
     Dosage: UNK
  2. PRISTIQ EXTENDED-RELEASE [Suspect]
     Active Substance: DESVENLAFAXINE SUCCINATE
     Indication: DEPRESSION
     Dosage: 50 MG, UNK
     Dates: start: 201808
  3. QUETIAPINE. [Concomitant]
     Active Substance: QUETIAPINE
     Dosage: UNK

REACTIONS (3)
  - Exostosis [Not Recovered/Not Resolved]
  - Fall [Not Recovered/Not Resolved]
  - Joint dislocation [Not Recovered/Not Resolved]

NARRATIVE: CASE EVENT DATE: 20180923
